FAERS Safety Report 10076999 (Version 1)
Quarter: 2014Q2

REPORT INFORMATION
  Report Type: Spontaneous
  Country: NL (occurrence: NL)
  Receive Date: 20140414
  Receipt Date: 20140414
  Transmission Date: 20141212
  Serious: Yes (Other)
  Sender: FDA-Public Use
  Company Number: NL-ACTAVIS-2014-07021

PATIENT
  Age: 3 Year
  Sex: Male
  Weight: 12.4 kg

DRUGS (11)
  1. CYCLOSPORINE (UNKNOWN) [Suspect]
     Indication: PROPHYLAXIS AGAINST GRAFT VERSUS HOST DISEASE
     Dosage: 50 MG, BID
     Route: 065
  2. CYCLOSPORINE (UNKNOWN) [Suspect]
     Dosage: 80 MG, BID
     Route: 065
  3. CYCLOSPORINE (UNKNOWN) [Suspect]
     Dosage: 60 MG, BID
     Route: 065
  4. CYCLOSPORINE (UNKNOWN) [Suspect]
     Dosage: 70 UNK, UNK
     Route: 065
  5. RIFAMPICIN (UNKNOWN) [Suspect]
     Indication: STAPHYLOCOCCUS TEST POSITIVE
     Dosage: 120 MG, BID
     Route: 065
  6. RIFAMPICIN (UNKNOWN) [Suspect]
     Indication: DEVICE RELATED INFECTION
  7. VANCOMYCIN [Concomitant]
     Indication: STAPHYLOCOCCUS TEST POSITIVE
     Dosage: 180 MG, QID
     Route: 042
  8. VANCOMYCIN [Concomitant]
     Indication: DEVICE RELATED INFECTION
  9. VALACYCLOVIR HYDROCHLORIDE [Concomitant]
     Indication: PRODUCT USED FOR UNKNOWN INDICATION
     Dosage: UNK
     Route: 065
  10. COTRIMOXAZOL [Concomitant]
     Indication: PRODUCT USED FOR UNKNOWN INDICATION
     Dosage: UNK
     Route: 065
  11. ONDANSETRON [Concomitant]
     Indication: PRODUCT USED FOR UNKNOWN INDICATION
     Dosage: UNK
     Route: 065

REACTIONS (2)
  - Drug level decreased [Recovered/Resolved]
  - Drug interaction [Recovered/Resolved]
